FAERS Safety Report 7230776-X (Version None)
Quarter: 2011Q1

REPORT INFORMATION
  Report Type: 
  Country: None (occurrence: None)
  Receive Date: 20110118
  Receipt Date: 20110105
  Transmission Date: 20110831
  Serious: No
  Sender: FDA-Public Use
  Company Number: US-B.I. PHARMACEUTICALS,INC./RIDGEFIELD-2010-BP-13914BP

PATIENT
  Age: 77 Year
  Sex: Male

DRUGS (2)
  1. LIDOCAINE HYDROCHLORIDE IN PLASTIC CONTAINER [Concomitant]
  2. PRADAXA [Suspect]
     Indication: ATRIAL FIBRILLATION
     Dosage: 300 MG
     Dates: start: 20101115, end: 20101115

REACTIONS (3)
  - RESPIRATORY DISORDER [None]
  - WHEEZING [None]
  - DYSPNOEA [None]
